FAERS Safety Report 9071660 (Version 1)
Quarter: 2013Q1

REPORT INFORMATION
  Report Type: Spontaneous
  Country: US (occurrence: US)
  Receive Date: 20130129
  Receipt Date: 20130129
  Transmission Date: 20140127
  Serious: Yes (Other)
  Sender: FDA-Public Use
  Company Number: US-EISAI INC-E3180-06187-SPO-US

PATIENT
  Sex: Male

DRUGS (15)
  1. ACIPHEX (RABEPRAZOLE) [Suspect]
     Route: 048
  2. ARANESP [Suspect]
     Indication: NEPHROGENIC ANAEMIA
     Route: 040
     Dates: start: 200911
  3. ARANESP [Suspect]
     Route: 040
     Dates: start: 20120521
  4. NICHISTATE [Suspect]
     Route: 048
  5. ALLOPURINOL [Suspect]
     Route: 048
  6. REGPARA [Concomitant]
     Dosage: UNKNOWN
     Route: 065
  7. ASPARA-CA [Concomitant]
     Dosage: UNKNOWN
     Route: 065
  8. LUPRAC [Concomitant]
     Dosage: UNKNOWN
     Route: 065
  9. KALLIKREIN [Concomitant]
     Dosage: UNKNOWN
     Route: 065
  10. PLATIBIT [Concomitant]
     Dosage: UNKNOWN
     Route: 065
  11. SELBEX [Concomitant]
     Dosage: UNKNOWN
     Route: 065
  12. OLMETEC [Concomitant]
     Dosage: UNKNOWN
     Route: 065
  13. RENAGEL [Concomitant]
     Dosage: UNKNOWN
     Route: 065
  14. FOSRENOL [Concomitant]
     Dosage: UNKNOWN
     Route: 065
  15. CALTAN [Concomitant]
     Dosage: UNKNOWN
     Route: 065

REACTIONS (1)
  - Aplasia pure red cell [Unknown]
